FAERS Safety Report 4389076-8 (Version None)
Quarter: 2004Q3

REPORT INFORMATION
  Report Type: 
  Country: None (occurrence: None)
  Receive Date: 20040702
  Receipt Date: 20040625
  Transmission Date: 20050211
  Serious: Yes (Hospitalization)
  Sender: FDA-Public Use
  Company Number: 200414897US

PATIENT
  Sex: Male
  Weight: 59.1 kg

DRUGS (21)
  1. LASIX [Suspect]
     Indication: CARDIAC FAILURE CONGESTIVE
     Route: 048
     Dates: end: 20031117
  2. SSRI [Suspect]
     Indication: DEPRESSION
     Route: 048
     Dates: end: 20040101
  3. CELEXA [Suspect]
     Indication: DEPRESSION
     Route: 048
  4. LISINOPRIL [Suspect]
     Indication: HYPERTENSION
     Route: 048
     Dates: end: 20031101
  5. KAYEXALATE [Concomitant]
     Dosage: DOSE: UNK
  6. COREG [Concomitant]
     Dates: start: 20040101
  7. PROTONIX [Concomitant]
  8. ATIVAN [Concomitant]
     Dates: end: 20031101
  9. TYLENOL [Concomitant]
     Dates: end: 20031101
  10. VITAMIN B-12 [Concomitant]
     Dates: start: 20031101
  11. COLACE [Concomitant]
     Dates: end: 20031101
  12. FERROUS SULFATE TAB [Concomitant]
     Dates: end: 20031101
  13. MAALOX [Concomitant]
     Dates: end: 20031101
  14. MILK OF MAGNESIA TAB [Concomitant]
     Dates: end: 20031101
  15. NORVASC [Concomitant]
     Dates: start: 20031117, end: 20040101
  16. ASPIRIN [Concomitant]
     Dates: start: 20031201
  17. ISOSORBIDE MONONITRATE [Concomitant]
     Dates: start: 20031201
  18. AVELOX [Concomitant]
     Dates: start: 20031201
  19. ALBUTEROL [Concomitant]
     Dosage: DOSE: 8 PUFFS
     Dates: start: 20031201
  20. XANAX [Concomitant]
     Dates: start: 20031201, end: 20040101
  21. COMBIVENT [Concomitant]
     Dosage: DOSE: 8 UNITS
     Dates: start: 20040101

REACTIONS (29)
  - ABDOMINAL AORTIC BRUIT [None]
  - ACUTE PRERENAL FAILURE [None]
  - ANXIETY [None]
  - ASTHENIA [None]
  - BLOOD BICARBONATE INCREASED [None]
  - BLOOD MAGNESIUM INCREASED [None]
  - BLOOD PRESSURE INCREASED [None]
  - BRAIN NATRIURETIC PEPTIDE INCREASED [None]
  - CARDIAC FAILURE CONGESTIVE [None]
  - CARDIAC MURMUR [None]
  - CHEST WALL PAIN [None]
  - CHRONIC OBSTRUCTIVE AIRWAYS DISEASE EXACERBATED [None]
  - COMMUNICATION DISORDER [None]
  - CONVERSION DISORDER [None]
  - DEMENTIA [None]
  - EJECTION FRACTION DECREASED [None]
  - GASTRITIS [None]
  - MITRAL VALVE INCOMPETENCE [None]
  - PNEUMONIA [None]
  - PROTEIN URINE PRESENT [None]
  - PSYCHOTIC DISORDER [None]
  - PULMONARY HYPERTENSION [None]
  - RED BLOOD CELLS URINE POSITIVE [None]
  - RENAL ARTERY STENOSIS [None]
  - RENAL FAILURE CHRONIC [None]
  - RESPIRATORY DISTRESS [None]
  - RESPIRATORY RATE INCREASED [None]
  - TACHYCARDIA [None]
  - WHITE BLOOD CELLS URINE POSITIVE [None]
